FAERS Safety Report 7180027-X (Version None)
Quarter: 2010Q4

REPORT INFORMATION
  Report Type: 
  Country: None (occurrence: None)
  Receive Date: 20101221
  Receipt Date: 20101209
  Transmission Date: 20110411
  Serious: Yes (Death)
  Sender: FDA-Public Use
  Company Number: US-ACTELION-A-US2010-41801

PATIENT

DRUGS (1)
  1. BOSENTAN TABLET UNKNOWN US MG [Suspect]
     Indication: EISENMENGER'S SYNDROME
     Dosage: UNK
     Route: 048
     Dates: start: 20100107, end: 20101117

REACTIONS (1)
  - DEATH [None]
